FAERS Safety Report 4436999-7 (Version None)
Quarter: 2004Q3

REPORT INFORMATION
  Report Type: 
  Country: None (occurrence: None)
  Receive Date: 20040830
  Receipt Date: 20040729
  Transmission Date: 20050211
  Serious: Yes (Other)
  Sender: FDA-Public Use
  Company Number: JP-ROCHE-375746

PATIENT
  Age: 85 Year
  Sex: Male

DRUGS (2)
  1. TORASEMIDE [Suspect]
     Route: 048
     Dates: start: 20020311, end: 20040625
  2. PANALDINE [Suspect]
     Indication: DRUG USE FOR UNKNOWN INDICATION
     Route: 048
     Dates: start: 20020311, end: 20040625

REACTIONS (2)
  - HEPATIC ENZYME INCREASED [None]
  - PYREXIA [None]
